FAERS Safety Report 25786164 (Version 1)
Quarter: 2025Q3

REPORT INFORMATION
  Report Type: Spontaneous
  Country: US (occurrence: US)
  Receive Date: 20250910
  Receipt Date: 20250910
  Transmission Date: 20251021
  Serious: No
  Sender: JOHNSON AND JOHNSON
  Company Number: US-JNJFOC-20250909435

PATIENT
  Sex: Female

DRUGS (2)
  1. STELARA [Suspect]
     Active Substance: USTEKINUMAB
     Indication: Crohn^s disease
     Route: 058
  2. STELARA [Suspect]
     Active Substance: USTEKINUMAB

REACTIONS (5)
  - Injection site irritation [Unknown]
  - Rash [Unknown]
  - Blood thyroid stimulating hormone decreased [Recovered/Resolved]
  - Hypersensitivity [Unknown]
  - Antibiotic level below therapeutic [Recovered/Resolved]

NARRATIVE: CASE EVENT DATE: 20241201
